FAERS Safety Report 24685883 (Version 5)
Quarter: 2025Q1

REPORT INFORMATION
  Report Type: Spontaneous
  Country: US (occurrence: US)
  Receive Date: 20241202
  Receipt Date: 20250218
  Transmission Date: 20250408
  Serious: No
  Sender: PFIZER
  Company Number: US-PFIZER INC-202400304915

PATIENT
  Age: 14 Year
  Sex: Male

DRUGS (1)
  1. GENOTROPIN [Suspect]
     Active Substance: SOMATROPIN
     Dosage: 1.6 (UNSPECIFIED UNIT) DAILY
     Dates: start: 2021

REACTIONS (3)
  - Device mechanical issue [Unknown]
  - Expired device used [Unknown]
  - Device difficult to use [Unknown]
